FAERS Safety Report 6177791-5 (Version None)
Quarter: 2009Q2

REPORT INFORMATION
  Report Type: 
  Country: None (occurrence: None)
  Receive Date: 20090430
  Receipt Date: 20090424
  Transmission Date: 20091009
  Serious: Yes (Hospitalization)
  Sender: FDA-Public Use
  Company Number: 2008TJ0080FU1

PATIENT
  Age: 54 Year
  Sex: Male

DRUGS (9)
  1. EPINEPHRINE [Suspect]
     Indication: ANAPHYLACTIC REACTION
     Dosage: 0.3 MG, PRN
     Dates: start: 20080408
  2. FOLIC ACID [Concomitant]
  3. AVALIDE (IRBESARTAN-HYDROCHLOROTHLAZIDE) [Concomitant]
  4. FUDDLE CREAM (FUCIDIC ACID, SODIUM FUCIDATE) [Concomitant]
  5. PROCTOSEDYL (HYDROCORTISONE-FRAMYCETIN-DIBUCALNE-ESCULIN) [Concomitant]
  6. FUROSEMIDE  BUSCOPAN (HYOSCINE-N-BUTYLBROMIDE) [Concomitant]
  7. CELEXA [Concomitant]
  8. POTASSIUM CHLORIDE [Concomitant]
  9. OMEPRAZOLE [Concomitant]

REACTIONS (2)
  - DEVICE MALFUNCTION [None]
  - PRODUCT QUALITY ISSUE [None]
